FAERS Safety Report 15278922 (Version 2)
Quarter: 2018Q4

REPORT INFORMATION
  Report Type: Spontaneous
  Country: US (occurrence: US)
  Receive Date: 20180815
  Receipt Date: 20181011
  Transmission Date: 20190204
  Serious: No
  Sender: FDA-Public Use
  Company Number: US-ASTRAZENECA-2018SF00337

PATIENT
  Age: 72 Year
  Sex: Male
  Weight: 136.1 kg

DRUGS (3)
  1. PULMICORT FLEXHALER [Suspect]
     Active Substance: BUDESONIDE
     Indication: ASTHMA
     Dosage: 90 UG, TWO PUFFS, TWICE A DAY
     Route: 055
  2. ALBUTEROL. [Concomitant]
     Active Substance: ALBUTEROL
     Indication: INHALATION THERAPY
     Dosage: UNKNOWN
     Route: 065
  3. PULMICORT FLEXHALER [Suspect]
     Active Substance: BUDESONIDE
     Indication: DYSPNOEA
     Dosage: 90 UG, TWO PUFFS, TWICE A DAY
     Route: 055

REACTIONS (9)
  - Product use issue [Unknown]
  - Product use in unapproved indication [Unknown]
  - Visual impairment [Unknown]
  - Intentional product misuse [Unknown]
  - Off label use [Unknown]
  - Drug ineffective [Unknown]
  - Device failure [Unknown]
  - Asthma [Unknown]
  - Wrong technique in product usage process [Unknown]
